FAERS Safety Report 16741916 (Version 1)
Quarter: 2019Q3

REPORT INFORMATION
  Report Type: Report from Study
  Country: US (occurrence: US)
  Receive Date: 20190826
  Receipt Date: 20190826
  Transmission Date: 20191005
  Serious: Yes (Other)
  Sender: FDA-Public Use
  Company Number: US-EXELIXIS-CABO-19023289

PATIENT
  Sex: Male

DRUGS (1)
  1. CABOMETYX [Suspect]
     Active Substance: CABOZANTINIB S-MALATE
     Indication: METASTASES TO LUNG
     Dosage: 40 MG, QD (TAKE 40MG BY MOUTH DAILY ON AN EMPTY STOMACH)
     Route: 048
     Dates: start: 20190711

REACTIONS (2)
  - Limb operation [Recovered/Resolved]
  - Off label use [Unknown]
